FAERS Safety Report 4736438-2 (Version None)
Quarter: 2005Q3

REPORT INFORMATION
  Report Type: 
  Country: None (occurrence: None)
  Receive Date: 20050804
  Receipt Date: 20050720
  Transmission Date: 20060218
  Serious: No
  Sender: FDA-Public Use
  Company Number: 2005PV000473

PATIENT
  Sex: Male

DRUGS (3)
  1. SYMLIN [Suspect]
     Indication: DIABETES MELLITUS INSULIN-DEPENDENT
     Dosage: 15 MCG; SC ; 30 MCG; TID; SC
     Route: 058
  2. INSULIN [Concomitant]
  3. LANTUS [Concomitant]

REACTIONS (1)
  - HYPOGLYCAEMIA [None]
